FAERS Safety Report 10097287 (Version 2)
Quarter: 2014Q2

REPORT INFORMATION
  Report Type: Spontaneous
  Country: JP (occurrence: JP)
  Receive Date: 20140422
  Receipt Date: 20140602
  Transmission Date: 20141212
  Serious: Yes (Hospitalization, Other)
  Sender: FDA-Public Use
  Company Number: PHHY2014JP048971

PATIENT
  Age: 93 Year
  Sex: Female

DRUGS (2)
  1. EXELON PATCH [Suspect]
     Indication: DEMENTIA ALZHEIMER^S TYPE
     Dosage: 13.5 MG, DAILY
     Route: 062
     Dates: end: 20140418
  2. MEMARY [Concomitant]
     Dosage: 15 MG
     Route: 048

REACTIONS (2)
  - Femur fracture [Unknown]
  - Fall [Unknown]
